FAERS Safety Report 4515570-2 (Version None)
Quarter: 2004Q4

REPORT INFORMATION
  Report Type: 
  Country: None (occurrence: None)
  Receive Date: 20041126
  Receipt Date: 20041113
  Transmission Date: 20050328
  Serious: Yes (Hospitalization)
  Sender: FDA-Public Use
  Company Number: 2004092057

PATIENT
  Age: 76 Year
  Sex: Male
  Weight: 113.3993 kg

DRUGS (9)
  1. LIPITOR [Suspect]
     Indication: ILL-DEFINED DISORDER
     Dosage: ORAL
     Route: 048
     Dates: end: 20030101
  2. SULFAMETHOXAZOLE (SULFAMETOXAZOLE) [Concomitant]
  3. FUROSEMIDE [Concomitant]
  4. VALSARTAN (VALSARTAN) [Concomitant]
  5. DILTIAZEM [Concomitant]
  6. TOCOPHEROL CONCENTRATE CAP [Concomitant]
  7. CENTRUM SILVER (ASCORBIC ACID, CALCIUM, MINERALS NOS, RETINOL, TOCOPHE [Concomitant]
  8. ASPIRIN [Concomitant]
  9. INSULIN [Concomitant]

REACTIONS (3)
  - DRUG TOXICITY [None]
  - DYSSTASIA [None]
  - MUSCULAR WEAKNESS [None]
